FAERS Safety Report 25127532 (Version 1)
Quarter: 2025Q1

REPORT INFORMATION
  Report Type: Spontaneous
  Country: IT (occurrence: IT)
  Receive Date: 20250327
  Receipt Date: 20250327
  Transmission Date: 20250408
  Serious: Yes (Hospitalization)
  Sender: GE HEALTHCARE
  Company Number: None

PATIENT
  Age: 73 Year
  Sex: Female

DRUGS (2)
  1. OMNIPAQUE [Suspect]
     Active Substance: IOHEXOL
     Indication: Computerised tomogram thorax
     Route: 042
     Dates: start: 20250317, end: 20250317
  2. OMNIPAQUE [Suspect]
     Active Substance: IOHEXOL
     Indication: Computerised tomogram abdomen

REACTIONS (4)
  - Asthmatic crisis [Unknown]
  - Acute respiratory failure [Unknown]
  - Cyanosis [Unknown]
  - Blood pressure immeasurable [Unknown]

NARRATIVE: CASE EVENT DATE: 20250317
